FAERS Safety Report 11271178 (Version 3)
Quarter: 2017Q1

REPORT INFORMATION
  Report Type: Report from Study
  Country: KR (occurrence: KR)
  Receive Date: 20150714
  Receipt Date: 20170303
  Transmission Date: 20170428
  Serious: Yes (Hospitalization)
  Sender: FDA-Public Use
  Company Number: KR-GLAXOSMITHKLINE-KR2015089550

PATIENT
  Age: 68 Year
  Sex: Male
  Weight: 58 kg

DRUGS (4)
  1. BLINDED PLACEBO [Suspect]
     Active Substance: INVESTIGATIONAL PRODUCT
     Indication: CHRONIC OBSTRUCTIVE PULMONARY DISEASE
     Dosage: UNK, CYC
     Route: 058
     Dates: start: 20141016
  2. BLINDED MEPOLIZUMAB [Suspect]
     Active Substance: MEPOLIZUMAB
     Indication: CHRONIC OBSTRUCTIVE PULMONARY DISEASE
     Dosage: UNK, CYC
     Route: 058
     Dates: start: 20141016
  3. BLINDED MEPOLIZUMAB [Suspect]
     Active Substance: MEPOLIZUMAB
     Indication: CHRONIC OBSTRUCTIVE PULMONARY DISEASE
     Dosage: UNK, CYC
     Route: 058
     Dates: start: 20141016
  4. BLINDED PLACEBO [Suspect]
     Active Substance: INVESTIGATIONAL PRODUCT
     Indication: CHRONIC OBSTRUCTIVE PULMONARY DISEASE
     Dosage: UNK, CYC
     Route: 058
     Dates: start: 20141016

REACTIONS (1)
  - Chronic obstructive pulmonary disease [Recovered/Resolved]

NARRATIVE: CASE EVENT DATE: 20150620
